FAERS Safety Report 5002805-5 (Version None)
Quarter: 2006Q2

REPORT INFORMATION
  Report Type: 
  Country: None (occurrence: None)
  Receive Date: 20060512
  Receipt Date: 20060425
  Transmission Date: 20061013
  Serious: Yes (Other)
  Sender: FDA-Public Use
  Company Number: MX200512000468

PATIENT
  Age: 61 Year
  Sex: Female

DRUGS (8)
  1. FORTEO [Suspect]
     Indication: OSTEOPOROSIS
     Dosage: 20, DAILY (1/D)
  2. FUROSEMIDE [Concomitant]
  3. NIFEDIPINE [Concomitant]
  4. OIETIN         (ERYTHROPOIETIN) [Concomitant]
  5. HERRON OSTEO ESE          (GLUCOSAMINE HYDROCHLORIDE) [Concomitant]
  6. LANTUS [Concomitant]
  7. LOSARTAN POTASSIUM [Concomitant]
  8. FORTEO PEN                 (FORTEO PEN) PEN, DIPOSABLE [Concomitant]

REACTIONS (7)
  - ABASIA [None]
  - BONE NEOPLASM [None]
  - CALCINOSIS [None]
  - LUMBAR VERTEBRAL FRACTURE [None]
  - METASTASIS [None]
  - PELVIC FRACTURE [None]
  - UTERINE LEIOMYOMA [None]
